FAERS Safety Report 20583614 (Version 1)
Quarter: 2022Q1

REPORT INFORMATION
  Report Type: Report from Study
  Country: US (occurrence: US)
  Receive Date: 20220311
  Receipt Date: 20220311
  Transmission Date: 20220423
  Serious: Yes (Hospitalization)
  Sender: FDA-Public Use
  Company Number: US-PFIZER INC-202200348737

PATIENT
  Age: 87 Year
  Sex: Female

DRUGS (2)
  1. DILTIAZEM HYDROCHLORIDE [Interacting]
     Active Substance: DILTIAZEM HYDROCHLORIDE
     Indication: Product used for unknown indication
     Dosage: UNK
  2. IMBRUVICA [Interacting]
     Active Substance: IBRUTINIB
     Dosage: 280 MG, 1X/DAY (280 MG,1 IN 1 D)
     Route: 048

REACTIONS (4)
  - Head injury [Unknown]
  - Fall [Unknown]
  - Vomiting [Unknown]
  - Drug interaction [Unknown]
